FAERS Safety Report 9409474 (Version 1)
Quarter: 2013Q3

REPORT INFORMATION
  Report Type: Spontaneous
  Country: US (occurrence: US)
  Receive Date: 20130719
  Receipt Date: 20130719
  Transmission Date: 20140515
  Serious: Yes (Other)
  Sender: FDA-Public Use
  Company Number: US-BAYER-2013-084282

PATIENT
  Age: 33 Year
  Sex: Female

DRUGS (1)
  1. GIANVI [Suspect]
     Indication: ORAL CONTRACEPTION
     Dosage: UNK

REACTIONS (2)
  - Medication error [Not Recovered/Not Resolved]
  - Withdrawal bleed [Not Recovered/Not Resolved]
